FAERS Safety Report 12797636 (Version 1)
Quarter: 2016Q3

REPORT INFORMATION
  Report Type: Spontaneous
  Country: US (occurrence: US)
  Receive Date: 20160930
  Receipt Date: 20160930
  Transmission Date: 20161109
  Serious: Yes (Other)
  Sender: FDA-Public Use
  Company Number: US-CELGENEUS-USA-2016095852

PATIENT
  Sex: Female
  Weight: 80.74 kg

DRUGS (3)
  1. OTEZLA [Suspect]
     Active Substance: APREMILAST
     Indication: PSORIATIC ARTHROPATHY
     Route: 048
     Dates: start: 20160116
  2. OTEZLA [Suspect]
     Active Substance: APREMILAST
     Dosage: 30MG BID, SKIP EVENING DOSE OF OTEZLA ON THE SATURDAY EVERY WEEK
     Route: 048
     Dates: start: 2016
  3. METHOTREXATE. [Suspect]
     Active Substance: METHOTREXATE
     Indication: PRODUCT USED FOR UNKNOWN INDICATION
     Dosage: SATURDAY EVENING
     Route: 048

REACTIONS (1)
  - Nausea [Unknown]
